FAERS Safety Report 5658232-0 (Version None)
Quarter: 2008Q1

REPORT INFORMATION
  Report Type: 
  Country: None (occurrence: None)
  Receive Date: 20080310
  Receipt Date: 20070118
  Transmission Date: 20080703
  Serious: No
  Sender: FDA-Public Use
  Company Number: US-BAYER-200710205BCC

PATIENT
  Age: 74 Year
  Sex: Male
  Weight: 83 kg

DRUGS (5)
  1. ALEVE [Suspect]
     Indication: BACK PAIN
     Dosage: UNIT DOSE: 220 MG
     Route: 048
     Dates: start: 20070101
  2. ALEVE [Suspect]
     Dosage: UNIT DOSE: 220 MG
     Route: 048
     Dates: start: 20070117
  3. XANAX [Concomitant]
  4. ASPIRIN [Concomitant]
  5. DYAZIDE [Concomitant]

REACTIONS (3)
  - BACK PAIN [None]
  - NAUSEA [None]
  - VOMITING [None]
